FAERS Safety Report 7331544-0 (Version None)
Quarter: 2011Q1

REPORT INFORMATION
  Report Type: 
  Country: None (occurrence: None)
  Receive Date: 20110304
  Receipt Date: 20110221
  Transmission Date: 20110831
  Serious: Yes (Other)
  Sender: FDA-Public Use
  Company Number: US-SANOFI-AVENTIS-2011SA004952

PATIENT
  Age: 74 Year
  Sex: Female

DRUGS (2)
  1. MULTAQ [Suspect]
     Dosage: 400 MG IN THE MORNING AND 200 MG IN THE EVENING
     Route: 048
     Dates: start: 20110101
  2. MULTAQ [Suspect]
     Indication: ATRIAL FIBRILLATION
     Route: 048
     Dates: start: 20110118

REACTIONS (5)
  - CONDITION AGGRAVATED [None]
  - MUSCULAR WEAKNESS [None]
  - TREMOR [None]
  - ATRIAL FIBRILLATION [None]
  - MALAISE [None]
